FAERS Safety Report 16660228 (Version 1)
Quarter: 2019Q3

REPORT INFORMATION
  Report Type: Spontaneous
  Country: US (occurrence: US)
  Receive Date: 20190619
  Receipt Date: 20190619
  Transmission Date: 20191004
  Serious: No
  Sender: FDA-Public Use
  Company Number: None

PATIENT
  Age: 18 Year
  Sex: Female

DRUGS (1)
  1. ORKAMBI [Suspect]
     Active Substance: IVACAFTOR\LUMACAFTOR
     Dates: start: 2016, end: 2017

REACTIONS (3)
  - Pneumonia [None]
  - Lung disorder [None]
  - Condition aggravated [None]

NARRATIVE: CASE EVENT DATE: 20160101
